FAERS Safety Report 26156882 (Version 1)
Quarter: 2025Q4

REPORT INFORMATION
  Report Type: Spontaneous
  Country: US (occurrence: US)
  Receive Date: 20251215
  Receipt Date: 20251215
  Transmission Date: 20260118
  Serious: No
  Sender: ALCON
  Company Number: US-ALCON LABORATORIES-ALC2025US006891

PATIENT
  Age: 53 Year
  Sex: Female

DRUGS (1)
  1. ACOLTREMON [Suspect]
     Active Substance: ACOLTREMON
     Indication: Dry eye
     Dosage: INSTILL ONE DROP INTO BOTH EYES TWICE DAILY
     Route: 047
     Dates: start: 20250924

REACTIONS (1)
  - Multiple use of single-use product [Unknown]
